FAERS Safety Report 12766828 (Version 1)
Quarter: 2016Q3

REPORT INFORMATION
  Report Type: Spontaneous
  Country: US (occurrence: US)
  Receive Date: 20160921
  Receipt Date: 20160921
  Transmission Date: 20161109
  Serious: No
  Sender: FDA-Public Use
  Company Number: US-GUERBET LLC-1057519

PATIENT
  Age: 75 Year
  Sex: Female

DRUGS (1)
  1. OPTIRAY [Suspect]
     Active Substance: IOVERSOL
     Indication: COMPUTERISED TOMOGRAM
     Route: 042
     Dates: start: 20160602, end: 20160602

REACTIONS (2)
  - Chest discomfort [Recovered/Resolved]
  - Cough [Recovered/Resolved]

NARRATIVE: CASE EVENT DATE: 20160602
